FAERS Safety Report 14088883 (Version 1)
Quarter: 2017Q4

REPORT INFORMATION
  Report Type: Spontaneous
  Country: FR (occurrence: FR)
  Receive Date: 20171013
  Receipt Date: 20171013
  Transmission Date: 20180321
  Serious: Yes (Other)
  Sender: FDA-Public Use
  Company Number: FR-ELI_LILLY_AND_COMPANY-FR201710005203

PATIENT
  Age: 53 Year
  Sex: Female

DRUGS (5)
  1. CALCIDOSE                          /00944201/ [Concomitant]
     Active Substance: CALCIUM CARBONATE\CHOLECALCIFEROL
     Indication: PRODUCT USED FOR UNKNOWN INDICATION
     Dosage: UNK, UNKNOWN
     Route: 065
     Dates: start: 201708
  2. EVISTA [Suspect]
     Active Substance: RALOXIFENE HYDROCHLORIDE
     Indication: OSTEOPOROSIS
     Dosage: 30 MG, DAILY
     Route: 048
     Dates: start: 20170914, end: 20170915
  3. PROZAC [Concomitant]
     Active Substance: FLUOXETINE HYDROCHLORIDE
     Indication: PRODUCT USED FOR UNKNOWN INDICATION
     Dosage: 10 MG, DAILY
     Route: 065
     Dates: start: 201707
  4. EVISTA [Suspect]
     Active Substance: RALOXIFENE HYDROCHLORIDE
     Indication: OSTEOPENIA
     Dosage: 60 MG, DAILY
     Route: 048
     Dates: start: 20170916
  5. EVISTA [Suspect]
     Active Substance: RALOXIFENE HYDROCHLORIDE
     Indication: SPINAL FRACTURE
     Dosage: 60 MG, DAILY
     Route: 048
     Dates: start: 20170911, end: 20170912

REACTIONS (3)
  - Pain [Recovered/Resolved]
  - Muscle spasms [Recovered/Resolved]
  - Gingival bleeding [Unknown]

NARRATIVE: CASE EVENT DATE: 20170912
